FAERS Safety Report 6011728-4 (Version None)
Quarter: 2008Q4

REPORT INFORMATION
  Report Type: 
  Country: None (occurrence: None)
  Receive Date: 20081218
  Receipt Date: 20081211
  Transmission Date: 20090506
  Serious: Yes (Death, Life-Threatening, Hospitalization, Other)
  Sender: FDA-Public Use
  Company Number: JP-ELI_LILLY_AND_COMPANY-JP200812000429

PATIENT
  Sex: Male
  Weight: 46 kg

DRUGS (8)
  1. GEMZAR [Suspect]
     Indication: PANCREATIC CARCINOMA RECURRENT
     Dosage: 1200 MG, OTHER
     Route: 042
     Dates: start: 20071009, end: 20081006
  2. TS 1 /JPN/ [Concomitant]
     Indication: PANCREATIC CARCINOMA RECURRENT
     Dosage: 80 MG, OTHER
     Route: 048
     Dates: start: 20080702, end: 20080722
  3. GASTER D /JPN/ [Concomitant]
     Indication: PROPHYLAXIS AGAINST GASTROINTESTINAL ULCER
     Dosage: 40 MG, DAILY (1/D)
     Route: 048
     Dates: start: 20080508, end: 20081115
  4. HARNAL [Concomitant]
     Indication: BENIGN PROSTATIC HYPERPLASIA
     Dosage: 0.2 MG, DAILY (1/D)
     Route: 048
     Dates: start: 20080722, end: 20081115
  5. MYSLEE [Concomitant]
     Indication: INSOMNIA
     Dosage: 5 MG, DAILY (1/D)
     Route: 048
     Dates: start: 20080922, end: 20081115
  6. ADALAT CC [Concomitant]
     Indication: HYPERTENSION
     Dosage: 10 MG, DAILY (1/D)
     Route: 048
     Dates: start: 20081006, end: 20081115
  7. CYANOCOBALAMIN [Concomitant]
     Indication: VITAMIN B12 DEFICIENCY
     Dosage: 1.5 MG, DAILY (1/D)
     Route: 048
     Dates: start: 20081023, end: 20081115
  8. FESIN [Concomitant]
     Indication: IRON DEFICIENCY ANAEMIA
     Dosage: 80 MG, DAILY (1/D)
     Route: 042
     Dates: start: 20080726, end: 20080804

REACTIONS (9)
  - ANAEMIA [None]
  - ARTERIAL THROMBOSIS LIMB [None]
  - ASCITES [None]
  - CARDIAC FAILURE [None]
  - LYMPHANGIOSIS CARCINOMATOSA [None]
  - MALAISE [None]
  - PLATELET COUNT DECREASED [None]
  - PLEURAL EFFUSION [None]
  - RENAL IMPAIRMENT [None]
